FAERS Safety Report 9158156 (Version 1)
Quarter: 2013Q1

REPORT INFORMATION
  Report Type: Spontaneous
  Country: IE (occurrence: IE)
  Receive Date: 20130312
  Receipt Date: 20130312
  Transmission Date: 20140127
  Serious: Yes (Hospitalization)
  Sender: FDA-Public Use
  Company Number: IE-BAXTER-2013BAX008782

PATIENT
  Age: 58 Year
  Sex: Female

DRUGS (1)
  1. SODIUM CHLORIDE 0.9% W/V INTRAVENOUS INFUSION BP, POLYOLEFIN/POLYAMIDE [Suspect]
     Indication: DEHYDRATION
     Route: 042
     Dates: start: 20120304

REACTIONS (3)
  - Post procedural haemorrhage [Unknown]
  - Ocular hyperaemia [Unknown]
  - Asthenia [Unknown]
